FAERS Safety Report 6059902-5 (Version None)
Quarter: 2009Q1

REPORT INFORMATION
  Report Type: 
  Country: None (occurrence: None)
  Receive Date: 20090130
  Receipt Date: 20081209
  Transmission Date: 20090719
  Serious: No
  Sender: FDA-Public Use
  Company Number: US-ABBOTT-08P-163-0492224-00

PATIENT
  Sex: Male
  Weight: 85.352 kg

DRUGS (4)
  1. LUPRON DEPOT [Suspect]
     Indication: PROSTATIC SPECIFIC ANTIGEN INCREASED
     Dates: start: 20080501
  2. ZOMETTA [Concomitant]
     Indication: DRUG USE FOR UNKNOWN INDICATION
     Dosage: INFUSION
     Dates: start: 20070101
  3. DIOVAN WITH HCTZ [Concomitant]
     Indication: DRUG USE FOR UNKNOWN INDICATION
     Dosage: 160-12.5 MG DAILY
  4. ZIAC [Concomitant]
     Indication: BLOOD PRESSURE
     Dosage: 1/2 PILL EVERY OTHER DAY10/6.25MG

REACTIONS (1)
  - PROSTATIC SPECIFIC ANTIGEN INCREASED [None]
